FAERS Safety Report 23955301 (Version 3)
Quarter: 2025Q2

REPORT INFORMATION
  Report Type: Report from Study
  Country: US (occurrence: US)
  Receive Date: 20240610
  Receipt Date: 20250502
  Transmission Date: 20250716
  Serious: Yes (Hospitalization, Other)
  Sender: ABBVIE
  Company Number: US-ABBVIE-5788294

PATIENT
  Age: 74 Year
  Sex: Female

DRUGS (1)
  1. SKYRIZI [Suspect]
     Active Substance: RISANKIZUMAB-RZAA
     Indication: Product used for unknown indication
     Route: 058
     Dates: start: 20220208

REACTIONS (3)
  - Hernia [Recovered/Resolved]
  - Multiple allergies [Unknown]
  - Asthma [Unknown]

NARRATIVE: CASE EVENT DATE: 20240622
